FAERS Safety Report 9684671 (Version 2)
Quarter: 2013Q4

REPORT INFORMATION
  Report Type: Spontaneous
  Country: US (occurrence: US)
  Receive Date: 20131112
  Receipt Date: 20131212
  Transmission Date: 20140711
  Serious: Yes (Other)
  Sender: FDA-Public Use
  Company Number: US-ELI_LILLY_AND_COMPANY-US201311000919

PATIENT
  Age: 66 Year
  Sex: Female

DRUGS (1)
  1. EVISTA [Suspect]
     Indication: OSTEOPENIA
     Dosage: 60MG, ONCE DAILY
     Route: 065
     Dates: start: 2007, end: 20130925

REACTIONS (5)
  - Fluid retention [Recovered/Resolved]
  - Blood pressure increased [Not Recovered/Not Resolved]
  - Tenderness [Recovered/Resolved]
  - Fatigue [Unknown]
  - Acute stress disorder [Unknown]
